FAERS Safety Report 10200287 (Version 1)
Quarter: 2014Q2

REPORT INFORMATION
  Report Type: Spontaneous
  Country: US (occurrence: US)
  Receive Date: 20140527
  Receipt Date: 20140527
  Transmission Date: 20141212
  Serious: No
  Sender: FDA-Public Use
  Company Number: US-ASTRAZENECA-2014SE34405

PATIENT
  Sex: Female

DRUGS (1)
  1. TENORMIN [Suspect]
     Route: 065
     Dates: start: 1979

REACTIONS (1)
  - Therapeutic response changed [Unknown]
